FAERS Safety Report 18457964 (Version 1)
Quarter: 2020Q4

REPORT INFORMATION
  Report Type: Spontaneous
  Country: US (occurrence: US)
  Receive Date: 20201103
  Receipt Date: 20201103
  Transmission Date: 20210114
  Serious: No
  Sender: FDA-Public Use
  Company Number: US-TARO-2020TAR01233

PATIENT

DRUGS (2)
  1. MUPIROCIN OINTMENT USP 2% [Suspect]
     Active Substance: MUPIROCIN
     Indication: THERMAL BURN
  2. MUPIROCIN OINTMENT USP 2% [Suspect]
     Active Substance: MUPIROCIN
     Indication: MELANOCYTIC NAEVUS
     Dosage: ONCE SO FAR
     Route: 061
     Dates: start: 20200709, end: 20200709

REACTIONS (1)
  - Application site pain [Not Recovered/Not Resolved]

NARRATIVE: CASE EVENT DATE: 20200709
